FAERS Safety Report 6684545-X (Version None)
Quarter: 2010Q2

REPORT INFORMATION
  Report Type: 
  Country: None (occurrence: None)
  Receive Date: 20100416
  Receipt Date: 20100408
  Transmission Date: 20101027
  Serious: Yes (Life-Threatening)
  Sender: FDA-Public Use
  Company Number: FR-ROCHE-696383

PATIENT
  Sex: Female

DRUGS (11)
  1. PEGASYS [Suspect]
     Route: 058
     Dates: start: 20080701, end: 20091001
  2. CORDARONE [Concomitant]
  3. ALPRESS LP [Concomitant]
     Dosage: ALPRESS LP 2.5
  4. NEXIUM [Concomitant]
     Dosage: INEXIUM 20
  5. ATHYMIL 10 [Concomitant]
  6. TRIATEC 5 [Concomitant]
  7. CONTRAMAL [Concomitant]
     Dosage: 2 IN MORNING, 1 IN LUNCH, 2 IN EVENG
  8. MORPHINE [Concomitant]
     Route: 058
  9. DIFFU K [Concomitant]
  10. DOLIPRANE [Concomitant]
  11. RIBAVIRIN [Concomitant]
     Dates: start: 20080701, end: 20091001

REACTIONS (14)
  - ANAEMIA [None]
  - CARDIAC TAMPONADE [None]
  - CHILLS [None]
  - ESCHERICHIA URINARY TRACT INFECTION [None]
  - HEPATOJUGULAR REFLUX [None]
  - HYPERHIDROSIS [None]
  - HYPOALBUMINAEMIA [None]
  - HYPONATRAEMIA [None]
  - IATROGENIC INJURY [None]
  - OEDEMA PERIPHERAL [None]
  - PLEURAL EFFUSION [None]
  - PLEUROPERICARDITIS [None]
  - RESPIRATORY ALKALOSIS [None]
  - THROMBOCYTOPENIA [None]
